FAERS Safety Report 4269668-7 (Version None)
Quarter: 2004Q1

REPORT INFORMATION
  Report Type: 
  Country: None (occurrence: None)
  Receive Date: 20040109
  Receipt Date: 20031219
  Transmission Date: 20041129
  Serious: Yes (Death)
  Sender: FDA-Public Use
  Company Number: KII-2003-0006661

PATIENT
  Age: 78 Year
  Sex: Female

DRUGS (3)
  1. OXYCONTIN [Suspect]
     Indication: DRUG USE FOR UNKNOWN INDICATION
     Dosage: 240 MG, BID,
  2. OXYFAST CONCENTRATE 20 MG/ML (OXYCODONE HYDROCHLORIDE) ORAL SOLUTION [Suspect]
     Indication: DRUG USE FOR UNKNOWN INDICATION
     Dosage: 6 ML, Q2-4H,
  3. MORPHINE [Suspect]
     Indication: DRUG USE FOR UNKNOWN INDICATION
     Dosage: 26 MG, Q1H, INTRAVENOUS
     Route: 042

REACTIONS (2)
  - CONDITION AGGRAVATED [None]
  - LYMPH NODE CANCER METASTATIC [None]
